FAERS Safety Report 9520893 (Version 2)
Quarter: 2013Q4

REPORT INFORMATION
  Report Type: Spontaneous
  Country: US (occurrence: None)
  Receive Date: 20130911
  Receipt Date: 20131001
  Transmission Date: 20140711
  Serious: Yes (Death, Other)
  Sender: FDA-Public Use
  Company Number: ADR-2013-01587

PATIENT
  Age: 59 Year
  Sex: Female

DRUGS (2)
  1. BACLOFEN INTRATHECAL [Suspect]
     Indication: PAIN
     Dosage: 449.6 MCG/DAY
     Dates: start: 20120925, end: 20130901
  2. SUFENTANIL [Suspect]
     Dosage: 149.88 MCG/DAY

REACTIONS (1)
  - Myocardial infarction [None]
